FAERS Safety Report 25058921 (Version 1)
Quarter: 2025Q1

REPORT INFORMATION
  Report Type: Spontaneous
  Country: US (occurrence: US)
  Receive Date: 20250310
  Receipt Date: 20250310
  Transmission Date: 20250409
  Serious: Yes (Other)
  Sender: MYLAN
  Company Number: US-MYLANLABS-2025M1017570

PATIENT
  Age: 48 Year
  Sex: Male

DRUGS (11)
  1. ACETAZOLAMIDE [Suspect]
     Active Substance: ACETAZOLAMIDE
     Indication: Central serous chorioretinopathy
     Dosage: 500 MILLIGRAM, BID
  2. SPIRONOLACTONE [Suspect]
     Active Substance: SPIRONOLACTONE
     Indication: Central serous chorioretinopathy
     Dosage: 50 MILLIGRAM, BID
  3. METHOTREXATE [Suspect]
     Active Substance: METHOTREXATE
     Indication: Central serous chorioretinopathy
  4. MYCOPHENOLATE MOFETIL [Suspect]
     Active Substance: MYCOPHENOLATE MOFETIL
     Indication: Central serous chorioretinopathy
     Dosage: 1500 MILLIGRAM, BID
  5. ADALIMUMAB [Suspect]
     Active Substance: ADALIMUMAB
     Indication: Central serous chorioretinopathy
     Dosage: 40 MILLIGRAM, BIWEEKLY, TWICE WEEKLY
  6. INTERFERON [Suspect]
     Active Substance: INTERFERON
     Indication: Central serous chorioretinopathy
     Dosage: 2 MILLION UNITS THREE TIMES WEEKLY, 3XW
  7. INTERFERON [Suspect]
     Active Substance: INTERFERON
  8. PEGINTERFERON ALFA-2A [Suspect]
     Active Substance: PEGINTERFERON ALFA-2A
     Indication: Central serous chorioretinopathy
     Dosage: 180 MICROGRAM, QW
  9. PREDNISONE [Concomitant]
     Active Substance: PREDNISONE
     Indication: Central serous chorioretinopathy
     Dosage: 80 MILLIGRAM, QD
  10. BEVACIZUMAB [Concomitant]
     Active Substance: BEVACIZUMAB
     Indication: Central serous chorioretinopathy
  11. AFLIBERCEPT [Concomitant]
     Active Substance: AFLIBERCEPT
     Indication: Central serous chorioretinopathy

REACTIONS (3)
  - Drug ineffective [Unknown]
  - Treatment noncompliance [Unknown]
  - Off label use [Unknown]
